FAERS Safety Report 9695932 (Version 1)
Quarter: 2013Q4

REPORT INFORMATION
  Report Type: Spontaneous
  Country: US (occurrence: None)
  Receive Date: 20131118
  Receipt Date: 20131118
  Transmission Date: 20140711
  Serious: No
  Sender: FDA-Public Use
  Company Number: None

PATIENT
  Age: 76 Year
  Sex: Female
  Weight: 65.32 kg

DRUGS (8)
  1. ATORVASTATIN 20MG [Suspect]
     Indication: BLOOD CHOLESTEROL INCREASED
     Route: 048
     Dates: start: 20130715, end: 20130930
  2. ENABLEX [Concomitant]
  3. PREMARIN [Concomitant]
  4. DEXILANT [Concomitant]
  5. PROBIOTIC [Concomitant]
  6. VITAMIN D-3 [Concomitant]
  7. CALCIUM CITRITE [Concomitant]
  8. VITAMIN B 12 [Concomitant]

REACTIONS (2)
  - Myalgia [None]
  - Asthenia [None]
